FAERS Safety Report 7738398-9 (Version None)
Quarter: 2011Q3

REPORT INFORMATION
  Report Type: 
  Country: None (occurrence: None)
  Receive Date: 20110908
  Receipt Date: 20110825
  Transmission Date: 20111222
  Serious: Yes (Other)
  Sender: FDA-Public Use
  Company Number: CH-GENENTECH-323679

PATIENT
  Age: 29 Year
  Sex: Female

DRUGS (4)
  1. ELTROMBOPAG [Suspect]
     Dosage: 25 MG, QAM
     Route: 048
     Dates: start: 20110601
  2. MIANSERINE [Suspect]
     Indication: PRODUCT USED FOR UNKNOWN INDICATION
     Dosage: 60 MG, QAM
     Route: 048
     Dates: start: 20110101
  3. ELTROMBOPAG [Suspect]
     Indication: PRODUCT USED FOR UNKNOWN INDICATION
     Dosage: 75 MG, QAM
     Route: 048
     Dates: start: 20110401, end: 20110501
  4. MABTHERA [Suspect]
     Indication: PRODUCT USED FOR UNKNOWN INDICATION
     Dosage: UNK
     Route: 041
     Dates: start: 20110301, end: 20110401

REACTIONS (3)
  - SYNOVITIS [None]
  - MYALGIA [None]
  - ARTHRALGIA [None]
